FAERS Safety Report 7033019-5 (Version None)
Quarter: 2010Q4

REPORT INFORMATION
  Report Type: 
  Country: None (occurrence: None)
  Receive Date: 20101007
  Receipt Date: 20101006
  Transmission Date: 20110411
  Serious: Yes (Other)
  Sender: FDA-Public Use
  Company Number: FI-PFIZER INC-2010110494

PATIENT
  Age: 53 Year
  Sex: Female

DRUGS (2)
  1. NORVASC [Suspect]
     Indication: HYPERTENSION
     Dosage: 5 MG, 2X/DAY
     Route: 048
     Dates: start: 19920101, end: 20100831
  2. ZANTAC [Concomitant]
     Indication: DIAPHRAGMATIC HERNIA
     Dosage: UNK
     Dates: start: 19920101

REACTIONS (9)
  - ALOPECIA [None]
  - ASTHENIA [None]
  - CHEST PAIN [None]
  - DYSPNOEA [None]
  - ERYTHEMA [None]
  - HEADACHE [None]
  - PURPURA [None]
  - RHINITIS [None]
  - TYPE 2 DIABETES MELLITUS [None]
